FAERS Safety Report 4680402-9 (Version None)
Quarter: 2005Q2

REPORT INFORMATION
  Report Type: 
  Country: None (occurrence: None)
  Receive Date: 20050601
  Receipt Date: 20050513
  Transmission Date: 20051028
  Serious: Yes (Hospitalization)
  Sender: FDA-Public Use
  Company Number: EWC050544025

PATIENT
  Age: 46 Year
  Sex: Female

DRUGS (5)
  1. OLANZAPINE [Suspect]
     Dosage: 250 MG
     Dates: start: 20050411, end: 20050411
  2. METHADONE HCL [Concomitant]
  3. MIDAZOLAM HCL [Concomitant]
  4. SOLIAN (AMISULPRIDE) [Concomitant]
  5. PRAZINE (PROMAZINE HYDROCHLORIDE) [Concomitant]

REACTIONS (6)
  - ASTHMA [None]
  - CONFUSIONAL STATE [None]
  - DRUG INTERACTION [None]
  - OVERDOSE [None]
  - RESPIRATORY DISTRESS [None]
  - RESPIRATORY FAILURE [None]
